FAERS Safety Report 4348296-9 (Version None)
Quarter: 2004Q1

REPORT INFORMATION
  Report Type: 
  Country: None (occurrence: None)
  Receive Date: 20040325
  Receipt Date: 20031202
  Transmission Date: 20041129
  Serious: No
  Sender: FDA-Public Use
  Company Number: USA031151569

PATIENT
  Age: 86 Year
  Sex: Female
  Weight: 64 kg

DRUGS (8)
  1. FORTEO [Suspect]
     Indication: OSTEOPOROSIS
     Dosage: 20 UG/DAY
     Dates: start: 20030901
  2. AVAPRO [Concomitant]
  3. VIOXX [Concomitant]
  4. TOPROL-XL [Concomitant]
  5. PREDNISONE [Concomitant]
  6. PLAVIX [Concomitant]
  7. MULTIVITAM [Concomitant]
  8. AZULFIDINE [Concomitant]

REACTIONS (3)
  - HYPERTENSION [None]
  - JOINT SWELLING [None]
  - OSTEOARTHRITIS [None]
